FAERS Safety Report 25898261 (Version 1)
Quarter: 2025Q4

REPORT INFORMATION
  Report Type: Spontaneous
  Country: JP (occurrence: JP)
  Receive Date: 20251008
  Receipt Date: 20251008
  Transmission Date: 20260118
  Serious: Yes (Hospitalization)
  Sender: JOHNSON AND JOHNSON
  Company Number: JP-MTPC-MTPC2025-0016487

PATIENT
  Age: 52 Year
  Sex: Male

DRUGS (4)
  1. INFLIXIMAB [Suspect]
     Active Substance: INFLIXIMAB
     Indication: Product used for unknown indication
     Dosage: 300 MILLIGRAM, QD
     Route: 065
  2. USTEKINUMAB [Suspect]
     Active Substance: USTEKINUMAB
     Indication: Psoriasis
     Dosage: 90 MILLIGRAM, QD
     Route: 065
  3. USTEKINUMAB [Suspect]
     Active Substance: USTEKINUMAB
  4. HYDROCORTISONE [Suspect]
     Active Substance: HYDROCORTISONE
     Indication: End stage renal disease
     Dosage: 20 MILLIGRAM, QD
     Route: 065

REACTIONS (1)
  - Gastroduodenal artery aneurysm [Recovered/Resolved]
